FAERS Safety Report 15058069 (Version 13)
Quarter: 2019Q3

REPORT INFORMATION
  Report Type: Spontaneous
  Country: US (occurrence: US)
  Receive Date: 20180625
  Receipt Date: 20190927
  Transmission Date: 20191004
  Serious: No
  Sender: FDA-Public Use
  Company Number: US-PFIZER INC-2018255023

PATIENT
  Age: 65 Year
  Sex: Female
  Weight: 147 kg

DRUGS (4)
  1. DEPAKENE [Concomitant]
     Active Substance: VALPROIC ACID
     Indication: PAIN
     Dosage: UNK
     Dates: end: 200308
  2. METHOTREXATE SODIUM. [Suspect]
     Active Substance: METHOTREXATE SODIUM
     Indication: RHEUMATOID ARTHRITIS
     Dosage: UNK
     Route: 058
     Dates: start: 2008, end: 20090103
  3. METHOTREXATE SODIUM. [Suspect]
     Active Substance: METHOTREXATE SODIUM
     Indication: COLITIS ULCERATIVE
     Dosage: UNK, WEEKLY
     Route: 048
     Dates: start: 199205, end: 200306
  4. METHOTREXATE SODIUM. [Suspect]
     Active Substance: METHOTREXATE SODIUM
     Indication: RHEUMATOID ARTHRITIS

REACTIONS (11)
  - Arthralgia [Unknown]
  - Gastric disorder [Unknown]
  - Pain [Recovered/Resolved]
  - Cognitive disorder [Unknown]
  - Emotional disorder [Unknown]
  - Post-traumatic stress disorder [Unknown]
  - Neck pain [Unknown]
  - Drug hypersensitivity [Recovered/Resolved]
  - Gait disturbance [Unknown]
  - Mental status changes [Recovered/Resolved]
  - Back pain [Unknown]
